FAERS Safety Report 15340574 (Version 1)
Quarter: 2018Q3

REPORT INFORMATION
  Report Type: Spontaneous
  Country: US (occurrence: US)
  Receive Date: 20180827
  Receipt Date: 20180827
  Transmission Date: 20181010
  Serious: Yes (Other)
  Sender: FDA-Public Use
  Company Number: None

PATIENT
  Age: 58 Year
  Sex: Female

DRUGS (1)
  1. JULUCA [Suspect]
     Active Substance: DOLUTEGRAVIR SODIUM\RILPIVIRINE HYDROCHLORIDE
     Indication: HIV INFECTION
     Route: 048
     Dates: start: 201805, end: 201808

REACTIONS (4)
  - Breast enlargement [None]
  - Refusal of treatment by patient [None]
  - Breast engorgement [None]
  - Breast haemorrhage [None]

NARRATIVE: CASE EVENT DATE: 20180805
